FAERS Safety Report 11312272 (Version 1)
Quarter: 2015Q3

REPORT INFORMATION
  Report Type: Spontaneous
  Country: PL (occurrence: PL)
  Receive Date: 20150727
  Receipt Date: 20150727
  Transmission Date: 20151125
  Serious: Yes (Other)
  Sender: FDA-Public Use
  Company Number: PL-PFIZER INC-2015228468

PATIENT
  Sex: Female

DRUGS (4)
  1. XALATAN [Suspect]
     Active Substance: LATANOPROST
     Dosage: 1 GTT, 1X/DAY IN THE EVENING
     Route: 047
     Dates: start: 201412, end: 201507
  2. XALATAN [Suspect]
     Active Substance: LATANOPROST
     Dosage: 1 GTT EACH EYE, ALTERNATE DAY
     Dates: start: 201507
  3. AMLODIPINE [Concomitant]
     Active Substance: AMLODIPINE BESYLATE
     Dosage: UNK
  4. XALATAN [Suspect]
     Active Substance: LATANOPROST
     Indication: INTRAOCULAR PRESSURE TEST ABNORMAL
     Dosage: UNK , AS NEEDED
     Route: 047

REACTIONS (6)
  - Chest pain [Not Recovered/Not Resolved]
  - Blood glucose increased [Recovering/Resolving]
  - Bronchospasm [Recovered/Resolved]
  - Cough [Recovered/Resolved]
  - Off label use [Not Recovered/Not Resolved]
  - Diabetic retinopathy [Not Recovered/Not Resolved]

NARRATIVE: CASE EVENT DATE: 201504
